FAERS Safety Report 9152392 (Version 2)
Quarter: 2013Q2

REPORT INFORMATION
  Report Type: Spontaneous
  Country: US (occurrence: US)
  Receive Date: 20130308
  Receipt Date: 20130611
  Transmission Date: 20140414
  Serious: Yes (Hospitalization, Other)
  Sender: FDA-Public Use
  Company Number: US-MERCK-1303USA003188

PATIENT
  Age: 42 Year
  Sex: Female
  Weight: 95.24 kg

DRUGS (5)
  1. JANUVIA [Suspect]
     Indication: TYPE 2 DIABETES MELLITUS
     Dosage: 100 MG, QD
     Route: 048
     Dates: start: 201208, end: 201302
  2. LANTUS [Concomitant]
  3. NOVOLOG [Concomitant]
  4. CALCIUM (UNSPECIFIED) [Concomitant]
  5. IRON (UNSPECIFIED) [Concomitant]

REACTIONS (4)
  - Pancreatitis acute [Recovered/Resolved]
  - Diarrhoea [Unknown]
  - Vulvovaginal candidiasis [Unknown]
  - Dehydration [Unknown]
